FAERS Safety Report 8617738 (Version 2)
Quarter: 2014Q3

REPORT INFORMATION
  Report Type: Report from Study
  Country: BG (occurrence: BG)
  Receive Date: 20120615
  Receipt Date: 20140716
  Transmission Date: 20150326
  Serious: Yes (Death, Life-Threatening)
  Sender: FDA-Public Use
  Company Number: BG-GLAXOSMITHKLINE-B0682710A

PATIENT
  Age: 80 Year
  Sex: Male
  Weight: 87 kg

DRUGS (3)
  1. CHLORAMBUCIL [Suspect]
     Active Substance: CHLORAMBUCIL
     Indication: CHRONIC LYMPHOCYTIC LEUKAEMIA
     Dosage: 52MG PER DAY
     Route: 065
     Dates: start: 20101011, end: 20101027
  2. MILURIT [Concomitant]
     Active Substance: ALLOPURINOL
     Indication: PROPHYLAXIS
     Dosage: 300MG PER DAY
     Route: 048
     Dates: start: 20101008
  3. ENALAPRIL [Concomitant]
     Active Substance: ENALAPRIL
     Indication: HYPERTENSION
     Dosage: 40MG PER DAY
     Route: 048
     Dates: start: 1991

REACTIONS (4)
  - Enterobacter sepsis [Not Recovered/Not Resolved]
  - Neutropenia [Recovered/Resolved with Sequelae]
  - Acute respiratory failure [Fatal]
  - Pneumonia [Not Recovered/Not Resolved]

NARRATIVE: CASE EVENT DATE: 20101025
